FAERS Safety Report 15888762 (Version 2)
Quarter: 2019Q1

REPORT INFORMATION
  Report Type: Spontaneous
  Country: US (occurrence: US)
  Receive Date: 20190130
  Receipt Date: 20190211
  Transmission Date: 20190417
  Serious: Yes (Other)
  Sender: FDA-Public Use
  Company Number: US-AKORN PHARMACEUTICALS-2019AKN00119

PATIENT
  Sex: Female
  Weight: 50 kg

DRUGS (1)
  1. MYORISAN [Suspect]
     Active Substance: ISOTRETINOIN
     Indication: TRANSIENT ACANTHOLYTIC DERMATOSIS
     Dosage: 40 MG, 1X/DAY
     Route: 048
     Dates: start: 201805, end: 20180831

REACTIONS (5)
  - Meibomian gland dysfunction [Not Recovered/Not Resolved]
  - Product use in unapproved indication [Recovered/Resolved]
  - Dry skin [Unknown]
  - Off label use [Recovered/Resolved]
  - Lip dry [Unknown]

NARRATIVE: CASE EVENT DATE: 2018
